FAERS Safety Report 20967948 (Version 2)
Quarter: 2022Q2

REPORT INFORMATION
  Report Type: Report from Study
  Country: FR (occurrence: FR)
  Receive Date: 20220616
  Receipt Date: 20220623
  Transmission Date: 20220721
  Serious: Yes (Other)
  Sender: FDA-Public Use
  Company Number: FR-EIGER BIOPHARMACEUTICALS-EIG-2022-000005

PATIENT

DRUGS (5)
  1. LONAFARNIB [Suspect]
     Active Substance: LONAFARNIB
     Indication: Progeria
     Dosage: 115 MG/M2, BID
     Dates: start: 20220213
  2. ASPIRIN [Concomitant]
     Active Substance: ASPIRIN
     Indication: Progeria
     Dosage: 50 MG, QD, ORALLY
     Dates: start: 20201201
  3. ASPIRIN [Concomitant]
     Active Substance: ASPIRIN
     Indication: Prophylaxis
  4. PRAVASTATIN [Concomitant]
     Active Substance: PRAVASTATIN
     Indication: Progeria
     Dosage: 5 MG, QD, ORALLY
     Dates: start: 20201201
  5. PRAVASTATIN [Concomitant]
     Active Substance: PRAVASTATIN
     Indication: Prophylaxis

REACTIONS (8)
  - Intracranial pressure increased [Not Recovered/Not Resolved]
  - Fatigue [Not Recovered/Not Resolved]
  - Headache [Not Recovered/Not Resolved]
  - Decreased appetite [Recovered/Resolved]
  - Weight decreased [Unknown]
  - Diarrhoea [Recovered/Resolved]
  - Asthenia [Recovered/Resolved]
  - Ear infection [Unknown]

NARRATIVE: CASE EVENT DATE: 20220204
